FAERS Safety Report 9304598 (Version 2)
Quarter: 2013Q2

REPORT INFORMATION
  Report Type: Spontaneous
  Country: US (occurrence: US)
  Receive Date: 20130523
  Receipt Date: 20130619
  Transmission Date: 20140414
  Serious: Yes (Other)
  Sender: FDA-Public Use
  Company Number: US-BIOGENIDEC-2013BI045428

PATIENT
  Age: 50 Year
  Sex: Female

DRUGS (1)
  1. TYSABRI [Suspect]
     Indication: MULTIPLE SCLEROSIS
     Route: 042
     Dates: start: 20070823

REACTIONS (4)
  - Convulsion [Recovered/Resolved]
  - Migraine [Recovered/Resolved]
  - Fatigue [Not Recovered/Not Resolved]
  - Overdose [Recovered/Resolved]
